FAERS Safety Report 6904471-8 (Version None)
Quarter: 2010Q3

REPORT INFORMATION
  Report Type: 
  Country: None (occurrence: None)
  Receive Date: 20100804
  Receipt Date: 20090602
  Transmission Date: 20110219
  Serious: No
  Sender: FDA-Public Use
  Company Number: US-PFIZER INC-2009180546

PATIENT
  Sex: Male
  Weight: 108.4 kg

DRUGS (16)
  1. LYRICA [Suspect]
     Indication: PAIN IN EXTREMITY
     Dosage: 50 MG, 1X/DAY
     Dates: start: 20090201
  2. LYRICA [Suspect]
     Indication: BACK PAIN
  3. SIMVASTATIN [Concomitant]
     Dosage: UNK
  4. METOPROLOL [Concomitant]
     Dosage: UNK
  5. AMLODIPINE [Concomitant]
     Dosage: UNK
  6. HYDROCODONE BITARTRATE [Concomitant]
     Dosage: UNK
  7. FUROSEMIDE [Concomitant]
     Dosage: UNK
  8. FLUNISOLIDE [Concomitant]
     Dosage: UNK
  9. TIMOLOL [Concomitant]
     Dosage: UNK
  10. MUPIROCIN [Concomitant]
     Dosage: UNK
  11. TRAVOPROST [Concomitant]
     Dosage: UNK
  12. BACITRACIN [Concomitant]
     Dosage: UNK
  13. LISINOPRIL [Concomitant]
     Dosage: UNK
  14. PROMETHAZINE [Concomitant]
     Dosage: UNK
  15. ACETAMINOPHEN [Concomitant]
     Dosage: UNK
  16. SENNOSIDES [Concomitant]
     Dosage: UNK

REACTIONS (4)
  - MUSCULAR WEAKNESS [None]
  - SOMNOLENCE [None]
  - SWELLING [None]
  - URINARY INCONTINENCE [None]
